FAERS Safety Report 8561068-4 (Version None)
Quarter: 2012Q3

REPORT INFORMATION
  Report Type: 
  Country: None (occurrence: None)
  Receive Date: 20120802
  Receipt Date: 20120229
  Transmission Date: 20120928
  Serious: No
  Sender: FDA-Public Use
  Company Number: US-BRISTOL-MYERS SQUIBB COMPANY-16373664

PATIENT
  Age: 29 Year
  Sex: Male
  Weight: 101 kg

DRUGS (7)
  1. DEPAKOTE [Concomitant]
  2. AMBIEN [Concomitant]
  3. RISPERIDONE [Concomitant]
  4. BACTRIM [Concomitant]
  5. ACYCLOVIR [Concomitant]
  6. LORAZEPAM [Concomitant]
  7. REYATAZ [Suspect]
     Indication: HIV INFECTION
     Dosage: 2 TABS DAILY
     Dates: start: 20110524, end: 20120120

REACTIONS (1)
  - ADVERSE EVENT [None]
